FAERS Safety Report 5590753-1 (Version None)
Quarter: 2008Q1

REPORT INFORMATION
  Report Type: 
  Country: None (occurrence: None)
  Receive Date: 20080114
  Receipt Date: 20080102
  Transmission Date: 20080703
  Serious: Yes (Other)
  Sender: FDA-Public Use
  Company Number: US-PFIZER INC-2008001458

PATIENT
  Sex: Female
  Weight: 70.454 kg

DRUGS (10)
  1. CHANTIX [Suspect]
     Indication: SMOKING CESSATION THERAPY
     Route: 048
     Dates: start: 20060901, end: 20061101
  2. XANAX [Suspect]
     Indication: ANXIETY
  3. VASOTEC [Concomitant]
  4. ZOCOR [Concomitant]
  5. SPIRIVA [Concomitant]
  6. ADVAIR DISKUS 100/50 [Concomitant]
  7. XOPENEX [Concomitant]
  8. DIURETICS [Concomitant]
  9. NEXIUM [Concomitant]
  10. PAXIL [Concomitant]

REACTIONS (6)
  - ABNORMAL DREAMS [None]
  - ANXIETY [None]
  - CLUMSINESS [None]
  - DEPRESSION [None]
  - GAIT DISTURBANCE [None]
  - HAEMORRHAGE [None]
